FAERS Safety Report 21990647 (Version 1)
Quarter: 2023Q1

REPORT INFORMATION
  Report Type: Spontaneous
  Country: US (occurrence: None)
  Receive Date: 20230214
  Receipt Date: 20230214
  Transmission Date: 20230417
  Serious: Yes (Hospitalization)
  Sender: FDA-Public Use
  Company Number: 2023A031958

PATIENT
  Age: 72 Year
  Sex: Male

DRUGS (1)
  1. LOKELMA [Suspect]
     Active Substance: SODIUM ZIRCONIUM CYCLOSILICATE
     Dosage: UNKNOWN
     Route: 048

REACTIONS (3)
  - Acute respiratory distress syndrome [Recovered/Resolved]
  - Oedema [Recovered/Resolved]
  - Generalised oedema [Recovered/Resolved]
